FAERS Safety Report 18792980 (Version 5)
Quarter: 2022Q1

REPORT INFORMATION
  Report Type: Spontaneous
  Country: US (occurrence: US)
  Receive Date: 20210127
  Receipt Date: 20220223
  Transmission Date: 20220423
  Serious: Yes (Other)
  Sender: FDA-Public Use
  Company Number: US-BEH-2021127662

PATIENT
  Age: 63 Year
  Sex: Male

DRUGS (16)
  1. IDELVION [Suspect]
     Active Substance: COAGULATION FACTOR IX RECOMBINANT HUMAN
     Indication: Factor IX deficiency
     Dosage: 10700 INTERNATIONAL UNIT, QOW, PRN
     Route: 042
     Dates: start: 20200701
  2. IDELVION [Suspect]
     Active Substance: COAGULATION FACTOR IX RECOMBINANT HUMAN
     Indication: Factor IX deficiency
     Dosage: 10700 INTERNATIONAL UNIT, QOW, PRN
     Route: 042
     Dates: start: 20200701
  3. IDELVION [Suspect]
     Active Substance: COAGULATION FACTOR IX RECOMBINANT HUMAN
     Indication: HIV infection
     Dosage: 10700 INTERNATIONAL UNIT, PRN
     Route: 042
     Dates: start: 20200701
  4. IDELVION [Suspect]
     Active Substance: COAGULATION FACTOR IX RECOMBINANT HUMAN
     Indication: HIV infection
     Dosage: 10700 INTERNATIONAL UNIT, PRN
     Route: 042
     Dates: start: 20200701
  5. IDELVION [Suspect]
     Active Substance: COAGULATION FACTOR IX RECOMBINANT HUMAN
     Indication: Restless legs syndrome
     Dosage: 10700 INTERNATIONAL UNIT, QD AS NEEDED
     Route: 042
     Dates: start: 202006
  6. IDELVION [Suspect]
     Active Substance: COAGULATION FACTOR IX RECOMBINANT HUMAN
     Indication: Restless legs syndrome
     Dosage: 10700 INTERNATIONAL UNIT, QD AS NEEDED
     Route: 042
     Dates: start: 202006
  7. IDELVION [Suspect]
     Active Substance: COAGULATION FACTOR IX RECOMBINANT HUMAN
     Indication: Infection
     Dosage: 4001 INTERNATIONAL UNIT, QOW
     Route: 042
     Dates: start: 20200902
  8. IDELVION [Suspect]
     Active Substance: COAGULATION FACTOR IX RECOMBINANT HUMAN
     Indication: Infection
     Dosage: 4001 INTERNATIONAL UNIT, QOW
     Route: 042
     Dates: start: 20200902
  9. IDELVION [Suspect]
     Active Substance: COAGULATION FACTOR IX RECOMBINANT HUMAN
     Dosage: 2040 INTERNATIONAL UNIT, QOW
     Route: 042
     Dates: start: 20200902
  10. IDELVION [Suspect]
     Active Substance: COAGULATION FACTOR IX RECOMBINANT HUMAN
     Dosage: 2040 INTERNATIONAL UNIT, QOW
     Route: 042
     Dates: start: 20200902
  11. IDELVION [Suspect]
     Active Substance: COAGULATION FACTOR IX RECOMBINANT HUMAN
     Dosage: UNK
     Route: 042
     Dates: start: 20220124
  12. IDELVION [Suspect]
     Active Substance: COAGULATION FACTOR IX RECOMBINANT HUMAN
     Dosage: UNK
     Route: 042
     Dates: start: 20220124
  13. IDELVION [Suspect]
     Active Substance: COAGULATION FACTOR IX RECOMBINANT HUMAN
     Dosage: UNK, PRN
     Route: 042
     Dates: start: 20220201
  14. IDELVION [Suspect]
     Active Substance: COAGULATION FACTOR IX RECOMBINANT HUMAN
     Dosage: UNK, PRN
     Route: 042
     Dates: start: 20220201
  15. IDELVION [Suspect]
     Active Substance: COAGULATION FACTOR IX RECOMBINANT HUMAN
     Dosage: UNK, PRN
     Route: 042
     Dates: start: 20220209
  16. IDELVION [Suspect]
     Active Substance: COAGULATION FACTOR IX RECOMBINANT HUMAN
     Dosage: UNK, PRN
     Route: 042
     Dates: start: 20220209

REACTIONS (13)
  - Haemarthrosis [Unknown]
  - Fall [Unknown]
  - Head injury [Unknown]
  - Traumatic haemorrhage [Recovered/Resolved]
  - No adverse event [Unknown]
  - Off label use [Unknown]
  - Haemarthrosis [Recovered/Resolved]
  - Traumatic haemorrhage [Unknown]
  - Pain [Unknown]
  - Joint injury [Unknown]
  - Limb injury [Unknown]
  - Arthralgia [Unknown]
  - Accident [Unknown]

NARRATIVE: CASE EVENT DATE: 20210120
